FAERS Safety Report 4999177-9 (Version None)
Quarter: 2006Q2

REPORT INFORMATION
  Report Type: 
  Country: None (occurrence: None)
  Receive Date: 20060511
  Receipt Date: 20060411
  Transmission Date: 20061013
  Serious: Yes (Other)
  Sender: FDA-Public Use
  Company Number: PHEH2006US04751

PATIENT
  Sex: Female

DRUGS (6)
  1. SYNTHROID [Concomitant]
     Indication: HYPOTHYROIDISM
  2. LEXAPRO [Concomitant]
  3. KLONOPIN [Concomitant]
  4. LUNESTA [Concomitant]
     Indication: INSOMNIA
  5. TEGRETOL [Suspect]
     Indication: BIPOLAR DISORDER
     Dosage: 400 MG, QHS
     Route: 048
     Dates: end: 19990101
  6. TEGRETOL [Suspect]
     Dosage: 400 MG, QHS
     Route: 048
     Dates: start: 20050901, end: 20060415

REACTIONS (5)
  - DIZZINESS [None]
  - INTENTIONAL OVERDOSE [None]
  - OBSESSIVE-COMPULSIVE DISORDER [None]
  - SUICIDAL IDEATION [None]
  - SUICIDE ATTEMPT [None]
